FAERS Safety Report 23288033 (Version 3)
Quarter: 2024Q1

REPORT INFORMATION
  Report Type: Spontaneous
  Country: US (occurrence: US)
  Receive Date: 20231212
  Receipt Date: 20240301
  Transmission Date: 20240409
  Serious: Yes (Other)
  Sender: FDA-Public Use
  Company Number: US-PFIZER INC-202300435563

PATIENT
  Age: 77 Year
  Sex: Female

DRUGS (1)
  1. VELSIPITY [Suspect]
     Active Substance: ETRASIMOD ARGININE
     Dosage: 1 TABLET BY MOUTH DAILY
     Route: 048

REACTIONS (4)
  - Rectal haemorrhage [Unknown]
  - Proctitis ulcerative [Unknown]
  - Dementia [Unknown]
  - Diarrhoea [Unknown]
